FAERS Safety Report 8500447-8 (Version None)
Quarter: 2012Q3

REPORT INFORMATION
  Report Type: 
  Country: None (occurrence: None)
  Receive Date: 20120710
  Receipt Date: 20120525
  Transmission Date: 20120928
  Serious: Yes (Hospitalization)
  Sender: FDA-Public Use
  Company Number: JP-GLAXOSMITHKLINE-B0804439A

PATIENT
  Sex: Female

DRUGS (5)
  1. LAMICTAL [Suspect]
     Indication: HEADACHE
     Dosage: 50MG PER DAY
     Route: 048
     Dates: start: 20120510, end: 20120523
  2. LOXONIN [Concomitant]
     Indication: HEADACHE
     Route: 048
  3. MUCOSTA [Concomitant]
     Indication: PROPHYLAXIS AGAINST GASTROINTESTINAL ULCER
     Dosage: 100MG PER DAY
     Route: 048
     Dates: start: 20120425, end: 20120523
  4. VALPROATE SODIUM [Concomitant]
     Indication: HEADACHE
     Dosage: 1.5G PER DAY
     Route: 048
     Dates: start: 20120425, end: 20120523
  5. LENDORMIN [Concomitant]
     Indication: INSOMNIA
     Dosage: .25MG PER DAY
     Route: 048
     Dates: start: 20120510, end: 20120523

REACTIONS (5)
  - HYPERTHERMIA [None]
  - HUMAN HERPES VIRUS 6 SEROLOGY POSITIVE [None]
  - LIVER DISORDER [None]
  - GENERALISED ERYTHEMA [None]
  - RASH [None]
